FAERS Safety Report 17997687 (Version 2)
Quarter: 2021Q1

REPORT INFORMATION
  Report Type: Spontaneous
  Country: RO (occurrence: RO)
  Receive Date: 20200708
  Receipt Date: 20210318
  Transmission Date: 20210419
  Serious: Yes (Other)
  Sender: FDA-Public Use
  Company Number: NVSC2020RO185356

PATIENT
  Age: 67 Year
  Sex: Female
  Weight: 95 kg

DRUGS (9)
  1. DOCETAXEL. [Suspect]
     Active Substance: DOCETAXEL
     Indication: BREAST CANCER METASTATIC
     Dosage: 150 MG, Q3W (Q3W , EVERY 3 WEEKS)
     Route: 042
     Dates: start: 20181106, end: 20190208
  2. ANASTROZOLE. [Suspect]
     Active Substance: ANASTROZOLE
     Indication: BREAST CANCER METASTATIC
     Dosage: 1 MG, QD (O.D: ONCE DAILY)
     Route: 048
     Dates: start: 20190513
  3. CYCLOPHOSPHAMIDE. [Suspect]
     Active Substance: CYCLOPHOSPHAMIDE
     Indication: BREAST CANCER METASTATIC
     Dosage: 1200 MG, Q3W (Q3W ? EVERY 3 WEEKS)
     Route: 042
     Dates: start: 20180807, end: 20181015
  4. TRASTUZUMAB. [Suspect]
     Active Substance: TRASTUZUMAB
     Indication: BREAST CANCER METASTATIC
     Dosage: 600 MG, Q3W ((Q3W ? EVERY 3 WEEKS))
     Route: 041
     Dates: start: 20181106
  5. DOCETAXEL. [Suspect]
     Active Substance: DOCETAXEL
     Dosage: 75 MG, Q3W (Q3W , EVERY 3 WEEKS)
     Route: 042
     Dates: start: 20190612, end: 20190814
  6. CYCLOPHOSPHAMIDE. [Suspect]
     Active Substance: CYCLOPHOSPHAMIDE
     Dosage: 600 MG, Q3W (Q3W ? EVERY 3 WEEKS)
     Route: 042
     Dates: start: 20190905
  7. EPIRUBICIN [Suspect]
     Active Substance: EPIRUBICIN
     Indication: BREAST CANCER METASTATIC
     Dosage: 100 MG, Q3W
     Route: 042
     Dates: start: 20190905
  8. DOXORUBICIN [Suspect]
     Active Substance: DOXORUBICIN
     Indication: BREAST CANCER METASTATIC
     Dosage: 120 MG, Q3W (Q3W, EVERY 3 WEEKS)
     Route: 042
     Dates: start: 20180807, end: 20181015
  9. TRASTUZUMAB. [Suspect]
     Active Substance: TRASTUZUMAB
     Dosage: 6 MG, Q3W (Q3W ? EVERY 3 WEEKS)
     Route: 041
     Dates: start: 20190612, end: 20190814

REACTIONS (1)
  - Cardiotoxicity [Recovered/Resolved]

NARRATIVE: CASE EVENT DATE: 20190510
